FAERS Safety Report 7754687-6 (Version None)
Quarter: 2011Q3

REPORT INFORMATION
  Report Type: 
  Country: None (occurrence: None)
  Receive Date: 20110915
  Receipt Date: 20110831
  Transmission Date: 20111222
  Serious: Yes (Death)
  Sender: FDA-Public Use
  Company Number: GB-WATSON-2011-08586

PATIENT
  Sex: Male

DRUGS (4)
  1. PHENYTOIN [Concomitant]
     Indication: EPILEPSY
     Dosage: UNK
     Route: 065
  2. TOPIRAMATE [Suspect]
     Indication: EPILEPSY
     Dosage: UNK
  3. LAMOTRIGINE [Concomitant]
     Indication: EPILEPSY
  4. VALPROATE SODIUM [Concomitant]
     Indication: EPILEPSY
     Dosage: UNK
     Route: 065

REACTIONS (2)
  - SEPSIS [None]
  - RENAL FAILURE [None]
